FAERS Safety Report 7222799-1 (Version None)
Quarter: 2011Q1

REPORT INFORMATION
  Report Type: 
  Country: None (occurrence: None)
  Receive Date: 20110112
  Receipt Date: 20110104
  Transmission Date: 20110831
  Serious: Yes (Hospitalization)
  Sender: FDA-Public Use
  Company Number: US-B.I. PHARMACEUTICALS,INC./RIDGEFIELD-2011-BP-00279BP

PATIENT
  Sex: Male

DRUGS (15)
  1. PRADAXA [Suspect]
     Indication: ATRIAL FIBRILLATION
     Dates: start: 20101201
  2. MICARDIS [Suspect]
     Indication: HYPERTENSION
     Dosage: 80 MG
     Route: 048
     Dates: start: 20090801
  3. PARAFON FORTE [Concomitant]
     Indication: MUSCLE SPASMS
  4. TRICOR [Concomitant]
     Indication: BLOOD CHOLESTEROL INCREASED
  5. B-12 VITAMIN [Concomitant]
     Indication: AUTOIMMUNE DISORDER
  6. COUMADIN [Concomitant]
     Indication: ATRIAL FIBRILLATION
     Dates: end: 20101201
  7. TESTOSTERONE [Concomitant]
     Indication: AUTOIMMUNE DISORDER
  8. PROZAC [Concomitant]
     Indication: DEPRESSION
     Dosage: 80 MG
  9. SYNTHROID [Concomitant]
     Indication: THYROID DISORDER
     Dosage: 0.25 MG
  10. NEXIUM [Concomitant]
     Indication: GASTRIC ULCER
     Dosage: 40 MG
  11. FOLIC ACID [Concomitant]
     Indication: RED BLOOD CELL ABNORMALITY
     Dosage: 1 MG
  12. ASPIRIN [Concomitant]
     Indication: PROPHYLAXIS
     Dosage: 81 MG
  13. WELCHOL [Concomitant]
     Indication: BLOOD CHOLESTEROL INCREASED
     Dosage: 3750 MG
  14. NEXIUM [Concomitant]
     Indication: ABDOMINAL DISCOMFORT
  15. ENBREL [Concomitant]
     Indication: AUTOIMMUNE DISORDER

REACTIONS (8)
  - FLATULENCE [None]
  - JOINT INJURY [None]
  - ERUCTATION [None]
  - DYSPEPSIA [None]
  - SENSATION OF FOREIGN BODY [None]
  - ARTHRALGIA [None]
  - ABDOMINAL PAIN UPPER [None]
  - ATRIAL FIBRILLATION [None]
